FAERS Safety Report 25675380 (Version 1)
Quarter: 2025Q3

REPORT INFORMATION
  Report Type: Spontaneous
  Country: US (occurrence: US)
  Receive Date: 20250813
  Receipt Date: 20250813
  Transmission Date: 20251020
  Serious: No
  Sender: ELI LILLY AND COMPANY
  Company Number: US-ELI_LILLY_AND_COMPANY-US202507025782

PATIENT
  Age: 45 Year
  Sex: Female

DRUGS (2)
  1. OMVOH [Suspect]
     Active Substance: MIRIKIZUMAB-MRKZ
     Indication: Product used for unknown indication
     Route: 065
  2. OMVOH [Suspect]
     Active Substance: MIRIKIZUMAB-MRKZ
     Route: 065
     Dates: start: 20250717

REACTIONS (7)
  - Bacterial test positive [Unknown]
  - Protein urine present [Unknown]
  - Urinary occult blood positive [Unknown]
  - Urinary squamous epithelial cells increased [Unknown]
  - White blood cells urine positive [Unknown]
  - Blood bilirubin increased [Unknown]
  - Urinary tract infection [Unknown]
